FAERS Safety Report 9314828 (Version 1)
Quarter: 2013Q2

REPORT INFORMATION
  Report Type: Report from Study
  Country: CN (occurrence: CN)
  Receive Date: 20130529
  Receipt Date: 20130529
  Transmission Date: 20140414
  Serious: Yes (Other)
  Sender: FDA-Public Use
  Company Number: CN-ROCHE-1229817

PATIENT
  Age: 23 Year
  Sex: Male

DRUGS (2)
  1. PEG-INTERFERON ALFA 2A [Suspect]
     Indication: HEPATITIS B
     Route: 058
     Dates: start: 201212, end: 201212
  2. PEG-INTERFERON ALFA 2A [Suspect]
     Route: 058
     Dates: start: 201212

REACTIONS (1)
  - White blood cell count decreased [Unknown]
